FAERS Safety Report 15247554 (Version 3)
Quarter: 2018Q3

REPORT INFORMATION
  Report Type: Spontaneous
  Country: FR (occurrence: FR)
  Receive Date: 20180807
  Receipt Date: 20180816
  Transmission Date: 20181010
  Serious: Yes (Hospitalization, Other)
  Sender: FDA-Public Use
  Company Number: FR-ASTRAZENECA-2018SE99092

PATIENT
  Sex: Male

DRUGS (10)
  1. XEROQUEL [Suspect]
     Active Substance: QUETIAPINE FUMARATE
     Indication: DEPRESSION
     Route: 048
     Dates: start: 2014
  2. VALIUM [Concomitant]
     Active Substance: DIAZEPAM
  3. XEROQUEL [Suspect]
     Active Substance: QUETIAPINE FUMARATE
     Indication: DEPRESSION
     Route: 048
     Dates: start: 201705
  4. XEROQUEL [Suspect]
     Active Substance: QUETIAPINE FUMARATE
     Indication: SCHIZOPHRENIA
     Route: 048
     Dates: start: 201705
  5. XEROQUEL [Suspect]
     Active Substance: QUETIAPINE FUMARATE
     Indication: SCHIZOPHRENIA
     Route: 048
     Dates: start: 2014
  6. RISPERDAL CONSTA [Concomitant]
     Active Substance: RISPERIDONE
     Dosage: 50.0MG UNKNOWN
  7. XEROQUEL [Suspect]
     Active Substance: QUETIAPINE FUMARATE
     Indication: INSOMNIA
     Route: 048
     Dates: start: 2014
  8. XEROQUEL [Suspect]
     Active Substance: QUETIAPINE FUMARATE
     Indication: INSOMNIA
     Route: 048
     Dates: start: 201705
  9. LEPTICUR [Concomitant]
     Active Substance: TROPATEPINE HYDROCHLORIDE
     Dosage: 10 MG (TWICE)
  10. NOCTAMIDE [Concomitant]
     Active Substance: LORMETAZEPAM

REACTIONS (10)
  - Constipation [Unknown]
  - Flatulence [Unknown]
  - Gastric disorder [Unknown]
  - Product use in unapproved indication [Recovered/Resolved]
  - Intestinal obstruction [Unknown]
  - Product use issue [Recovered/Resolved]
  - Weight decreased [Unknown]
  - Off label use [Recovered/Resolved]
  - Memory impairment [Unknown]
  - Tachycardia [Recovered/Resolved]
